FAERS Safety Report 15287064 (Version 1)
Quarter: 2018Q3

REPORT INFORMATION
  Report Type: Spontaneous
  Country: US (occurrence: US)
  Receive Date: 20180814
  Receipt Date: 20180814
  Transmission Date: 20181010
  Serious: Yes (Other)
  Sender: FDA-Public Use
  Company Number: None

PATIENT
  Age: 30 Year
  Sex: Female
  Weight: 78.12 kg

DRUGS (1)
  1. LUCKY SEVEN KRATOM [Suspect]
     Active Substance: MITRAGYNINE\HERBALS
     Indication: THERAPY CESSATION
     Route: 048
     Dates: start: 20160618, end: 20180810

REACTIONS (5)
  - Mobility decreased [None]
  - Dizziness [None]
  - Feeling abnormal [None]
  - Vertigo [None]
  - Visual impairment [None]

NARRATIVE: CASE EVENT DATE: 20180728
